FAERS Safety Report 6312828-1 (Version None)
Quarter: 2009Q3

REPORT INFORMATION
  Report Type: 
  Country: None (occurrence: None)
  Receive Date: 20090818
  Receipt Date: 20090811
  Transmission Date: 20100115
  Serious: Yes (Hospitalization)
  Sender: FDA-Public Use
  Company Number: US-JNJFOC-20081105088

PATIENT
  Sex: Female
  Weight: 115.2 kg

DRUGS (31)
  1. GOLIMUMAB [Suspect]
     Route: 042
  2. GOLIMUMAB [Suspect]
     Route: 042
  3. GOLIMUMAB [Suspect]
     Route: 042
  4. GOLIMUMAB [Suspect]
     Route: 042
  5. GOLIMUMAB [Suspect]
     Route: 042
  6. GOLIMUMAB [Suspect]
     Indication: RHEUMATOID ARTHRITIS
     Route: 042
  7. PLACEBO [Suspect]
     Indication: RHEUMATOID ARTHRITIS
     Route: 042
  8. METHOTREXATE [Suspect]
     Indication: RHEUMATOID ARTHRITIS
     Route: 048
  9. PLACEBO [Suspect]
     Route: 048
  10. PLACEBO [Suspect]
     Route: 048
  11. TYLENOL (CAPLET) [Concomitant]
     Route: 048
  12. COMPRAZINE [Concomitant]
     Route: 048
  13. FOLIC ACID [Concomitant]
     Indication: RHEUMATOID ARTHRITIS
     Route: 048
  14. ALBUTEROL [Concomitant]
     Route: 055
  15. ALLEGRA [Concomitant]
     Route: 048
  16. CARAFATE [Concomitant]
     Route: 048
  17. FLONASE [Concomitant]
     Route: 045
  18. FLOVENT [Concomitant]
     Route: 048
  19. KLONOPIN [Concomitant]
     Route: 048
  20. LASIX [Concomitant]
     Route: 048
  21. METFORMIN [Concomitant]
     Route: 048
  22. OXYGEN [Concomitant]
  23. PHENERGAN [Concomitant]
     Route: 058
  24. POTASSIUM CHLORIDE [Concomitant]
     Route: 048
  25. PREDNISONE [Concomitant]
     Indication: RHEUMATOID ARTHRITIS
     Route: 048
  26. PROTONIX [Concomitant]
     Route: 048
  27. REGLAN [Concomitant]
     Route: 048
  28. SEREVENT [Concomitant]
     Route: 055
  29. SINGULAIR [Concomitant]
     Route: 048
  30. VITAMIN D [Concomitant]
     Route: 048
  31. ZOLOFT [Concomitant]
     Route: 048

REACTIONS (1)
  - UPPER RESPIRATORY TRACT INFECTION [None]
